FAERS Safety Report 19424169 (Version 2)
Quarter: 2021Q3

REPORT INFORMATION
  Report Type: Spontaneous
  Country: US (occurrence: US)
  Receive Date: 20210616
  Receipt Date: 20210728
  Transmission Date: 20211014
  Serious: No
  Sender: FDA-Public Use
  Company Number: US-SA-2021SA194264

PATIENT
  Age: 31 Year
  Sex: Female

DRUGS (3)
  1. CEREZYME [Suspect]
     Active Substance: IMIGLUCERASE
     Route: 065
  2. VITAMINAS C [Suspect]
     Active Substance: ASCORBIC ACID
     Indication: ANAEMIA
  3. IRON [Suspect]
     Active Substance: IRON
     Indication: ANAEMIA

REACTIONS (5)
  - Exposure during pregnancy [Unknown]
  - Fatigue [Unknown]
  - Blood pressure abnormal [Unknown]
  - Anaemia [Unknown]
  - Abdominal discomfort [Unknown]

NARRATIVE: CASE EVENT DATE: 202101
